FAERS Safety Report 8274981-2 (Version None)
Quarter: 2012Q2

REPORT INFORMATION
  Report Type: 
  Country: None (occurrence: None)
  Receive Date: 20120411
  Receipt Date: 20120328
  Transmission Date: 20120825
  Serious: Yes (Hospitalization, Other)
  Sender: FDA-Public Use
  Company Number: BR-ROCHE-675637

PATIENT
  Sex: Female
  Weight: 58 kg

DRUGS (3)
  1. ARAVA [Concomitant]
  2. MABTHERA [Suspect]
     Indication: POLYARTHRITIS
     Dosage: DOSE REPORTED AS 1000 MG/ML
     Route: 042
     Dates: start: 20091118, end: 20120302
  3. PREDNISONE [Concomitant]

REACTIONS (15)
  - DYSPNOEA [None]
  - CARDIOMEGALY [None]
  - RENAL FAILURE [None]
  - URTICARIA [None]
  - PAIN IN EXTREMITY [None]
  - MALAISE [None]
  - INSOMNIA [None]
  - FATIGUE [None]
  - BLOOD UREA INCREASED [None]
  - BLOOD CREATININE INCREASED [None]
  - PYREXIA [None]
  - SYSTEMIC LUPUS ERYTHEMATOSUS [None]
  - THROMBOCYTOPENIA [None]
  - GENERALISED OEDEMA [None]
  - HYPERSENSITIVITY [None]
